FAERS Safety Report 4356379-2 (Version None)
Quarter: 2004Q2

REPORT INFORMATION
  Report Type: 
  Country: None (occurrence: None)
  Receive Date: 20040506
  Receipt Date: 20040427
  Transmission Date: 20050107
  Serious: Yes (Death)
  Sender: FDA-Public Use
  Company Number: 2004SE02383

PATIENT
  Age: 34 Year
  Sex: Female

DRUGS (5)
  1. MERONEM [Suspect]
     Indication: PNEUMONIA
  2. CLARITHROMYCIN [Concomitant]
  3. CEFUROXIM [Concomitant]
  4. ERYTHROMYCIN [Concomitant]
  5. RIFAMPICIN [Concomitant]

REACTIONS (2)
  - LIVER FUNCTION TEST ABNORMAL [None]
  - SHOCK [None]
